FAERS Safety Report 8419817-1 (Version None)
Quarter: 2012Q2

REPORT INFORMATION
  Report Type: 
  Country: None (occurrence: None)
  Receive Date: 20120607
  Receipt Date: 20120607
  Transmission Date: 20120825
  Serious: Yes (Death)
  Sender: FDA-Public Use
  Company Number: PHHY2012IN048499

PATIENT
  Age: 65 Year
  Sex: Male

DRUGS (2)
  1. REPAGLINIDE [Concomitant]
  2. ONBREZ [Suspect]
     Indication: CHRONIC OBSTRUCTIVE PULMONARY DISEASE
     Dosage: 300 UG, 150, 300 MCG/DAY
     Dates: start: 20110223

REACTIONS (1)
  - DEATH [None]
